FAERS Safety Report 18516649 (Version 1)
Quarter: 2020Q4

REPORT INFORMATION
  Report Type: Spontaneous
  Country: US (occurrence: US)
  Receive Date: 20201118
  Receipt Date: 20201118
  Transmission Date: 20210114
  Serious: Yes (Other)
  Sender: FDA-Public Use
  Company Number: None

PATIENT
  Age: 38 Year
  Sex: Female
  Weight: 146.3 kg

DRUGS (1)
  1. EMGALITY [Suspect]
     Active Substance: GALCANEZUMAB-GNLM
     Indication: MIGRAINE
     Dosage: OTHER FREQUENCY:MONTHLY;?
     Route: 058
     Dates: start: 20201112, end: 20201116

REACTIONS (4)
  - Taste disorder [None]
  - Feeling hot [None]
  - Tongue blistering [None]
  - Burning sensation [None]

NARRATIVE: CASE EVENT DATE: 20201112
